FAERS Safety Report 9723196 (Version 1)
Quarter: 2013Q4

REPORT INFORMATION
  Report Type: Spontaneous
  Country: FR (occurrence: None)
  Receive Date: 20131126
  Receipt Date: 20131126
  Transmission Date: 20140711
  Serious: Yes (Hospitalization)
  Sender: FDA-Public Use
  Company Number: FK201305094

PATIENT
  Age: 81 Year
  Sex: Female

DRUGS (2)
  1. PACLITAXEL [Suspect]
     Indication: OVARIAN CANCER
     Dosage: 100 MG. INTRAVENOUS ( NOT OTHERWISE SPECIFIED)
     Route: 042
     Dates: start: 20130919
  2. CARBOPLATINE [Suspect]
     Indication: OVARIAN CANCER
     Dosage: 30 MG, INTRAVENOUS ( NOT OTHERWISE SPECIFIED)
     Route: 042
     Dates: start: 20130919, end: 20130919

REACTIONS (4)
  - Pyrexia [None]
  - Chills [None]
  - Tremor [None]
  - Dyspnoea [None]
